FAERS Safety Report 6837440-7 (Version None)
Quarter: 2010Q3

REPORT INFORMATION
  Report Type: 
  Country: None (occurrence: None)
  Receive Date: 20100713
  Receipt Date: 20070510
  Transmission Date: 20110219
  Serious: No
  Sender: FDA-Public Use
  Company Number: US-PFIZER INC-2007039322

PATIENT
  Sex: Female
  Weight: 59.09 kg

DRUGS (10)
  1. CHANTIX [Suspect]
     Dates: start: 20070502
  2. TOPROL-XL [Concomitant]
     Indication: HYPERTENSION
  3. PAXIL [Concomitant]
  4. XANAX [Concomitant]
  5. VYTORIN [Concomitant]
  6. SOMA [Concomitant]
  7. DRUG, UNSPECIFIED [Concomitant]
  8. DIURETICS [Concomitant]
  9. CENTRUM [Concomitant]
  10. FISH OIL [Concomitant]

REACTIONS (6)
  - BLOOD PRESSURE INCREASED [None]
  - DRUG INTOLERANCE [None]
  - FATIGUE [None]
  - FEELING ABNORMAL [None]
  - HEADACHE [None]
  - TINNITUS [None]
